FAERS Safety Report 5807401-5 (Version None)
Quarter: 2008Q3

REPORT INFORMATION
  Report Type: 
  Country: None (occurrence: None)
  Receive Date: 20080711
  Receipt Date: 20080707
  Transmission Date: 20090109
  Serious: Yes (Other)
  Sender: FDA-Public Use
  Company Number: GB-TEVA-173971ISR

PATIENT

DRUGS (1)
  1. METFORMIN [Suspect]
     Indication: POLYCYSTIC OVARIES
     Route: 064
     Dates: end: 20080401

REACTIONS (2)
  - HYPOPLASTIC LEFT HEART SYNDROME [None]
  - TERATOGENICITY [None]
